FAERS Safety Report 9739622 (Version 1)
Quarter: 2013Q4

REPORT INFORMATION
  Report Type: Spontaneous
  Country: GB (occurrence: GB)
  Receive Date: 20131209
  Receipt Date: 20131209
  Transmission Date: 20140711
  Serious: Yes (Life-Threatening)
  Sender: FDA-Public Use
  Company Number: GB-MYLANLABS-2013S1026777

PATIENT
  Age: 80 Year
  Sex: Female
  Weight: 58.5 kg

DRUGS (8)
  1. ALENDRONIC ACID [Suspect]
     Indication: OSTEOPOROSIS
     Route: 048
     Dates: start: 20081208, end: 20130215
  2. ADCAL D3 [Concomitant]
     Indication: PRODUCT USED FOR UNKNOWN INDICATION
  3. CO-CODAMOL [Concomitant]
     Indication: OSTEOARTHRITIS
     Dates: start: 20050915
  4. IBUPROFEN [Concomitant]
     Indication: OSTEOARTHRITIS
     Dosage: 5%
     Dates: start: 20120912, end: 20130523
  5. IBUPROFEN [Concomitant]
     Indication: OSTEOARTHRITIS
     Dates: start: 20130213, end: 20130313
  6. LACTULOSE [Concomitant]
     Indication: PRODUCT USED FOR UNKNOWN INDICATION
  7. NITROFURANTOIN [Concomitant]
     Indication: URINARY TRACT INFECTION
     Dates: start: 20120712, end: 20130117
  8. OMEPRAZOLE [Concomitant]
     Indication: GASTROOESOPHAGEAL REFLUX DISEASE
     Dates: start: 20070330

REACTIONS (1)
  - Oesophageal cancer metastatic [Unknown]
